FAERS Safety Report 18158916 (Version 4)
Quarter: 2020Q4

REPORT INFORMATION
  Report Type: Spontaneous
  Country: US (occurrence: US)
  Receive Date: 20200817
  Receipt Date: 20201108
  Transmission Date: 20210113
  Serious: No
  Sender: FDA-Public Use
  Company Number: US-SA-2020SA208438

PATIENT

DRUGS (1)
  1. DUPIXENT [Suspect]
     Active Substance: DUPILUMAB
     Indication: NASAL POLYPS
     Dosage: 200 MG, QOW
     Route: 058
     Dates: start: 20200610

REACTIONS (9)
  - Drug ineffective [Unknown]
  - Skin discomfort [Recovering/Resolving]
  - Skin irritation [Recovering/Resolving]
  - Skin discomfort [Recovering/Resolving]
  - Erythema [Not Recovered/Not Resolved]
  - Product use issue [Unknown]
  - Injection site papule [Recovering/Resolving]
  - Injection site rash [Not Recovered/Not Resolved]
  - Injection site erythema [Unknown]

NARRATIVE: CASE EVENT DATE: 2020
